FAERS Safety Report 4741560-0 (Version None)
Quarter: 2005Q3

REPORT INFORMATION
  Report Type: 
  Country: None (occurrence: None)
  Receive Date: 20050808
  Receipt Date: 20050722
  Transmission Date: 20060218
  Serious: Yes (Other)
  Sender: FDA-Public Use
  Company Number: JP_050707165

PATIENT
  Age: 71 Year
  Sex: Female

DRUGS (6)
  1. EVISTA [Suspect]
     Indication: OSTEOPOROSIS
     Dosage: 60 MG/1 DAY
     Dates: start: 20040611
  2. TICLOPIDINE HCL [Concomitant]
  3. D ALFA (ALFACALCIDOL) [Concomitant]
  4. PIETENALE (TICLOPIDINE HYDROCHLORIDE) [Concomitant]
  5. ASPARA-CA (ASPARTATE  CALCIUM) [Concomitant]
  6. BOUFUUTSUUSHOUSAN [Concomitant]

REACTIONS (1)
  - TRANSVERSE SINUS THROMBOSIS [None]
